FAERS Safety Report 5901729-6 (Version None)
Quarter: 2008Q3

REPORT INFORMATION
  Report Type: 
  Country: None (occurrence: None)
  Receive Date: 20080929
  Receipt Date: 20080915
  Transmission Date: 20090109
  Serious: Yes (Hospitalization)
  Sender: FDA-Public Use
  Company Number: US-PURDUE-DEU_2008_0004648

PATIENT
  Age: 53 Year
  Sex: Female

DRUGS (2)
  1. MORPHINE SULFATE [Suspect]
     Indication: BACK PAIN
     Dosage: 17.5 MG, DAILY
     Route: 037
  2. MORPHINE SULFATE [Suspect]
     Dosage: UNK, SEE TEXT
     Route: 037

REACTIONS (1)
  - INJECTION SITE NODULE [None]
